FAERS Safety Report 18800882 (Version 2)
Quarter: 2021Q1

REPORT INFORMATION
  Report Type: Report from Study
  Country: None (occurrence: US)
  Receive Date: 20210128
  Receipt Date: 20210223
  Transmission Date: 20210419
  Serious: Yes (Hospitalization)
  Sender: FDA-Public Use
  Company Number: US-ABBVIE-20K-163-3551583-00

PATIENT
  Sex: Male
  Weight: 81.72 kg

DRUGS (3)
  1. HUMIRA [Suspect]
     Active Substance: ADALIMUMAB
     Indication: RHEUMATOID ARTHRITIS
     Dosage: CITRATE FREE
     Route: 058
     Dates: start: 2015
  2. HUMIRA [Suspect]
     Active Substance: ADALIMUMAB
     Dosage: CITRATE FREE
     Route: 058
     Dates: start: 202001, end: 202002
  3. GABAPENTIN. [Concomitant]
     Active Substance: GABAPENTIN
     Indication: RHEUMATOID ARTHRITIS

REACTIONS (8)
  - Injection site pain [Recovered/Resolved]
  - Injection site scab [Unknown]
  - Injection site scar [Recovering/Resolving]
  - Injection site abscess [Unknown]
  - Injection site erythema [Unknown]
  - Insomnia [Unknown]
  - Injection site swelling [Unknown]
  - Injection site infection [Recovering/Resolving]

NARRATIVE: CASE EVENT DATE: 2020
